FAERS Safety Report 9576910 (Version 1)
Quarter: 2013Q4

REPORT INFORMATION
  Report Type: Spontaneous
  Country: US (occurrence: US)
  Receive Date: 20131001
  Receipt Date: 20131001
  Transmission Date: 20140711
  Serious: No
  Sender: FDA-Public Use
  Company Number: US-AMGEN-USASP2013005428

PATIENT
  Age: 67 Year
  Sex: Male

DRUGS (16)
  1. ENBREL [Suspect]
     Indication: PSORIATIC ARTHROPATHY
     Dosage: 50 MG/ML, UNK
  2. LASIX                              /00032601/ [Concomitant]
     Dosage: UNK
  3. METOPROLOL [Concomitant]
     Dosage: UNK
  4. ALLOPURINOL [Concomitant]
     Dosage: UNK
  5. AVAPRO [Concomitant]
     Dosage: 150 MG, UNK
  6. HUMALOG MIX [Concomitant]
     Dosage: 75/25 KWP
  7. ZOLOFT [Concomitant]
     Dosage: 25 MG, UNK
  8. AMLODIPINE [Concomitant]
     Dosage: 10 MG, UNK
  9. METHOTREXATE [Concomitant]
     Dosage: 2.5 MG, UNK
  10. PRAVASTATIN [Concomitant]
     Dosage: 10 MG, UNK
  11. ADVAIR [Concomitant]
     Dosage: 100/50
  12. TOBRAMYCIN [Concomitant]
     Dosage: 0.3 %, UNK
     Route: 047
  13. PROAIR HFA [Concomitant]
     Dosage: UNK
  14. FOLIC ACID [Concomitant]
     Dosage: UNK
  15. SYNVISC [Concomitant]
     Dosage: 8 MG/ML, UNK
  16. METHYLPREDNISOLONE [Concomitant]
     Dosage: 16 MG, UNK

REACTIONS (1)
  - Cough [Unknown]
